FAERS Safety Report 7537408-1 (Version None)
Quarter: 2011Q2

REPORT INFORMATION
  Report Type: 
  Country: None (occurrence: None)
  Receive Date: 20110608
  Receipt Date: 20110608
  Transmission Date: 20111010
  Serious: No
  Sender: FDA-Public Use
  Company Number: None

PATIENT
  Sex: Female

DRUGS (1)
  1. TOPROL-XL [Suspect]
     Dosage: ONE TABLET BY MOUTH DAILY
     Route: 048
     Dates: start: 20100201

REACTIONS (2)
  - TABLET PHYSICAL ISSUE [None]
  - BLOOD PRESSURE SYSTOLIC INCREASED [None]
